FAERS Safety Report 7968087-7 (Version None)
Quarter: 2011Q4

REPORT INFORMATION
  Report Type: 
  Country: None (occurrence: None)
  Receive Date: 20111209
  Receipt Date: 20111206
  Transmission Date: 20120403
  Serious: Yes (Other)
  Sender: FDA-Public Use
  Company Number: US-PFIZER INC-2011298680

PATIENT
  Age: 82 Year
  Sex: Male

DRUGS (2)
  1. CARDURA [Suspect]
     Dosage: UNK
  2. SIMVASTATIN [Suspect]
     Dosage: UNK

REACTIONS (1)
  - HEART RATE IRREGULAR [None]
